FAERS Safety Report 4262919-4 (Version None)
Quarter: 2004Q1

REPORT INFORMATION
  Report Type: 
  Country: None (occurrence: None)
  Receive Date: 20040102
  Receipt Date: 20040102
  Transmission Date: 20041129
  Serious: Yes (Disabling)
  Sender: FDA-Public Use
  Company Number: None

PATIENT
  Age: 24 Year
  Sex: Female
  Weight: 52.1637 kg

DRUGS (1)
  1. PAXIL CR [Suspect]
     Indication: SOCIAL PHOBIA
     Dosage: 15 MG 1/ DAY ORAL
     Route: 048
     Dates: start: 20020601, end: 20030901

REACTIONS (4)
  - DIZZINESS [None]
  - DRUG WITHDRAWAL SYNDROME [None]
  - IMPAIRED DRIVING ABILITY [None]
  - IMPAIRED WORK ABILITY [None]
